FAERS Safety Report 18818215 (Version 4)
Quarter: 2021Q3

REPORT INFORMATION
  Report Type: Spontaneous
  Country: CA (occurrence: CA)
  Receive Date: 20210202
  Receipt Date: 20210714
  Transmission Date: 20211014
  Serious: Yes (Other)
  Sender: FDA-Public Use
  Company Number: CA-SA-2021SA028541

PATIENT
  Age: 51 Year
  Sex: Female

DRUGS (37)
  1. CYCLOPHOSPHAMIDE. [Suspect]
     Active Substance: CYCLOPHOSPHAMIDE
     Indication: BREAST CANCER STAGE III
  2. TRASTUZUMAB. [Suspect]
     Active Substance: TRASTUZUMAB
     Indication: PROGESTERONE RECEPTOR ASSAY NEGATIVE
     Dosage: UNK
     Route: 065
  3. TRASTUZUMAB. [Suspect]
     Active Substance: TRASTUZUMAB
     Indication: HER2 POSITIVE BREAST CANCER
  4. EPIRUBICIN HYDROCHLORIDE. [Suspect]
     Active Substance: EPIRUBICIN HYDROCHLORIDE
     Indication: OESTROGEN RECEPTOR ASSAY NEGATIVE
  5. FLUOROURACIL. [Suspect]
     Active Substance: FLUOROURACIL
     Indication: BREAST CANCER STAGE III
  6. CYCLOPHOSPHAMIDE. [Suspect]
     Active Substance: CYCLOPHOSPHAMIDE
     Indication: HER2 POSITIVE BREAST CANCER
  7. EPIRUBICIN [Suspect]
     Active Substance: EPIRUBICIN
     Indication: HER2 POSITIVE BREAST CANCER
     Dosage: UNK
     Route: 042
  8. EPIRUBICIN HYDROCHLORIDE. [Suspect]
     Active Substance: EPIRUBICIN HYDROCHLORIDE
     Indication: PROGESTERONE RECEPTOR ASSAY NEGATIVE
     Dosage: UNK
     Route: 065
  9. EPIRUBICIN HYDROCHLORIDE. [Suspect]
     Active Substance: EPIRUBICIN HYDROCHLORIDE
     Indication: BREAST CANCER STAGE III
  10. TRASTUZUMAB. [Suspect]
     Active Substance: TRASTUZUMAB
     Indication: OESTROGEN RECEPTOR ASSAY NEGATIVE
  11. TRASTUZUMAB. [Suspect]
     Active Substance: TRASTUZUMAB
     Indication: BREAST CANCER STAGE III
  12. EPIRUBICIN [Suspect]
     Active Substance: EPIRUBICIN
     Indication: BREAST CANCER STAGE III
  13. DOCETAXEL. [Suspect]
     Active Substance: DOCETAXEL
     Indication: BREAST CANCER STAGE III
  14. EPIRUBICIN HYDROCHLORIDE. [Suspect]
     Active Substance: EPIRUBICIN HYDROCHLORIDE
     Indication: HER2 POSITIVE BREAST CANCER
  15. EPIRUBICIN HYDROCHLORIDE. [Suspect]
     Active Substance: EPIRUBICIN HYDROCHLORIDE
     Indication: OESTROGEN RECEPTOR ASSAY NEGATIVE
  16. DOCETAXEL. [Suspect]
     Active Substance: DOCETAXEL
     Indication: PROGESTERONE RECEPTOR ASSAY NEGATIVE
     Dosage: UNK
     Route: 065
  17. EPIRUBICIN [Suspect]
     Active Substance: EPIRUBICIN
     Indication: PROGESTERONE RECEPTOR ASSAY NEGATIVE
     Dosage: UNK
     Route: 042
  18. CYCLOPHOSPHAMIDE. [Suspect]
     Active Substance: CYCLOPHOSPHAMIDE
     Indication: PROGESTERONE RECEPTOR ASSAY NEGATIVE
     Dosage: UNK
     Route: 065
  19. EPIRUBICIN [Suspect]
     Active Substance: EPIRUBICIN
     Indication: BREAST CANCER STAGE III
     Dosage: UNK
  20. EPIRUBICIN [Suspect]
     Active Substance: EPIRUBICIN
     Indication: OESTROGEN RECEPTOR ASSAY NEGATIVE
  21. DOCETAXEL. [Suspect]
     Active Substance: DOCETAXEL
     Indication: PROGESTERONE RECEPTOR ASSAY NEGATIVE
  22. DOCETAXEL. [Suspect]
     Active Substance: DOCETAXEL
     Indication: HER2 POSITIVE BREAST CANCER
  23. DOCETAXEL. [Suspect]
     Active Substance: DOCETAXEL
     Indication: BREAST CANCER STAGE III
  24. CYCLOPHOSPHAMIDE. [Suspect]
     Active Substance: CYCLOPHOSPHAMIDE
     Indication: OESTROGEN RECEPTOR ASSAY NEGATIVE
  25. EPIRUBICIN [Suspect]
     Active Substance: EPIRUBICIN
     Indication: OESTROGEN RECEPTOR ASSAY NEGATIVE
     Dosage: UNK
     Route: 042
  26. EPIRUBICIN [Suspect]
     Active Substance: EPIRUBICIN
     Indication: PROGESTERONE RECEPTOR ASSAY NEGATIVE
  27. EPIRUBICIN HYDROCHLORIDE. [Suspect]
     Active Substance: EPIRUBICIN HYDROCHLORIDE
     Indication: PROGESTERONE RECEPTOR ASSAY NEGATIVE
     Dosage: UNK
  28. DOCETAXEL. [Suspect]
     Active Substance: DOCETAXEL
     Indication: HER2 POSITIVE BREAST CANCER
  29. FLUOROURACIL. [Suspect]
     Active Substance: FLUOROURACIL
     Indication: OESTROGEN RECEPTOR ASSAY NEGATIVE
     Dosage: UNKN
  30. EPIRUBICIN [Suspect]
     Active Substance: EPIRUBICIN
     Indication: HER2 POSITIVE BREAST CANCER
  31. DOCETAXEL. [Suspect]
     Active Substance: DOCETAXEL
     Indication: OESTROGEN RECEPTOR ASSAY NEGATIVE
  32. EPIRUBICIN HYDROCHLORIDE. [Suspect]
     Active Substance: EPIRUBICIN HYDROCHLORIDE
     Indication: BREAST CANCER STAGE III
  33. ALTACE [Suspect]
     Active Substance: RAMIPRIL
     Indication: CARDIAC FAILURE CONGESTIVE
     Dosage: UNK
     Route: 065
  34. DOCETAXEL. [Suspect]
     Active Substance: DOCETAXEL
     Indication: OESTROGEN RECEPTOR ASSAY NEGATIVE
  35. FLUOROURACIL. [Suspect]
     Active Substance: FLUOROURACIL
     Indication: PROGESTERONE RECEPTOR ASSAY NEGATIVE
     Dosage: UNK
     Route: 065
  36. FLUOROURACIL. [Suspect]
     Active Substance: FLUOROURACIL
     Indication: HER2 POSITIVE BREAST CANCER
  37. EPIRUBICIN HYDROCHLORIDE. [Suspect]
     Active Substance: EPIRUBICIN HYDROCHLORIDE
     Indication: HER2 POSITIVE BREAST CANCER

REACTIONS (2)
  - Drug intolerance [Unknown]
  - Cardiac failure congestive [Unknown]
